FAERS Safety Report 4688517-6 (Version None)
Quarter: 2005Q2

REPORT INFORMATION
  Report Type: 
  Country: None (occurrence: None)
  Receive Date: 20050609
  Receipt Date: 20050517
  Transmission Date: 20051028
  Serious: Yes (Hospitalization)
  Sender: FDA-Public Use
  Company Number: 2005066936

PATIENT
  Age: 63 Year
  Sex: Male

DRUGS (12)
  1. METHYLPREDNISOLONE [Suspect]
     Indication: PYODERMA GANGRENOSUM
     Dosage: 1 GRAM, ONCE INTERVAL: EVERY 3 DAYS, INTRAVENOUS
     Route: 042
  2. PREDNISONE [Suspect]
     Indication: PYODERMA GANGRENOSUM
     Dosage: 80 MG (DAILY INTERVAL: EVERY DAY), ORAL
     Route: 048
  3. METHOTREXATE [Suspect]
     Indication: PYODERMA GANGRENOSUM
     Dosage: 7.5 MG (7.5 MG, WEEKLY INTERVAL: EVERY WEEK), ORAL
     Route: 048
  4. IMMUNE GLOBULIN INTRAVENOUS (HUMAN) [Suspect]
     Indication: PYODERMA GANGRENOSUM
     Dosage: 2000 MG/KG (2000 MG/KG), INTRAVENOUS
     Route: 042
  5. MYCOPHENOLIC ACID [Suspect]
     Indication: PYODERMA GANGRENOSUM
     Dosage: 1000 MG (500 MG, TWICE DAILY INTERVAL: EVERY DAY)
  6. CLOFAZIMINE (CLOFAZIMINE) [Suspect]
     Indication: PYODERMA GANGRENOSUM
     Dosage: 200 MG (200 MG, DAILY INTERVAL: EVERY DAY)
  7. CLOBETASOL (CLOBETASOL) [Concomitant]
  8. CYCLOSPORINE [Concomitant]
  9. THALIDOMIDE (THALIDOMIDE) [Concomitant]
  10. TRIAMCINOLONE [Concomitant]
  11. FILGRASTIM (FILGRASTIM) [Concomitant]
  12. ANTIBIOTICS (ANTIBIOTICS) [Concomitant]

REACTIONS (8)
  - CUSHINGOID [None]
  - DIABETES MELLITUS [None]
  - DRUG INEFFECTIVE [None]
  - HAEMOGLOBIN DECREASED [None]
  - IATROGENIC INFECTION [None]
  - PEPTIC ULCER PERFORATION [None]
  - PERITONITIS [None]
  - WOUND DEHISCENCE [None]
